FAERS Safety Report 5800566-0 (Version None)
Quarter: 2008Q3

REPORT INFORMATION
  Report Type: 
  Country: None (occurrence: None)
  Receive Date: 20080703
  Receipt Date: 20080627
  Transmission Date: 20090109
  Serious: Yes (Hospitalization)
  Sender: FDA-Public Use
  Company Number: AT-ROCHE-503250

PATIENT
  Sex: Male
  Weight: 79 kg

DRUGS (4)
  1. RIBAVIRIN [Suspect]
     Indication: HEPATITIS C
     Route: 048
     Dates: start: 20070105, end: 20070329
  2. PEGASYS [Suspect]
     Indication: HEPATITIS C
     Route: 058
     Dates: start: 20070105, end: 20070329
  3. VX-950 [Suspect]
     Indication: HEPATITIS C
     Route: 048
     Dates: start: 20070105, end: 20070329
  4. PANTOPRAZOLE SODIUM [Concomitant]
     Route: 048
     Dates: start: 20070216

REACTIONS (2)
  - DEAFNESS [None]
  - VERTIGO [None]
